FAERS Safety Report 17413749 (Version 3)
Quarter: 2020Q3

REPORT INFORMATION
  Report Type: Report from Study
  Country: US (occurrence: US)
  Receive Date: 20200213
  Receipt Date: 20200918
  Transmission Date: 20201102
  Serious: Yes (Hospitalization, Other)
  Sender: FDA-Public Use
  Company Number: NVSC2020US033301

PATIENT
  Age: 60 Year
  Sex: Male

DRUGS (1)
  1. MAYZENT [Suspect]
     Active Substance: SIPONIMOD
     Indication: SECONDARY PROGRESSIVE MULTIPLE SCLEROSIS
     Dosage: 2 MG, QD
     Route: 048
     Dates: start: 20190906

REACTIONS (4)
  - Musculoskeletal stiffness [Not Recovered/Not Resolved]
  - Condition aggravated [Not Recovered/Not Resolved]
  - Mobility decreased [Not Recovered/Not Resolved]
  - Secondary progressive multiple sclerosis [Not Recovered/Not Resolved]

NARRATIVE: CASE EVENT DATE: 20190906
